FAERS Safety Report 24937954 (Version 1)
Quarter: 2025Q1

REPORT INFORMATION
  Report Type: Spontaneous
  Country: FR (occurrence: FR)
  Receive Date: 20250206
  Receipt Date: 20250206
  Transmission Date: 20250408
  Serious: Yes (Life-Threatening, Hospitalization)
  Sender: TEVA
  Company Number: None

PATIENT
  Age: 61 Year
  Sex: Male
  Weight: 94 kg

DRUGS (20)
  1. ATENOLOL [Interacting]
     Active Substance: ATENOLOL
     Indication: Hypertension
     Route: 048
     Dates: start: 20241206, end: 20241208
  2. ATENOLOL [Interacting]
     Active Substance: ATENOLOL
     Indication: Hypertension
     Route: 048
     Dates: start: 2024, end: 20241203
  3. LEVOTHYROXINE [Concomitant]
     Active Substance: LEVOTHYROXINE
     Indication: Dyslipidaemia
     Dosage: 88 MICROGRAMS, SCORED TABLET
     Route: 048
     Dates: start: 2024
  4. LOXEN [Concomitant]
     Indication: Hypertension
     Dosage: 10 MG/10 ML
     Route: 042
     Dates: start: 20241128, end: 20241210
  5. VIMPAT [Interacting]
     Active Substance: LACOSAMIDE
     Indication: Tonic clonic movements
     Route: 042
     Dates: start: 20241202, end: 20241209
  6. VIMPAT [Interacting]
     Active Substance: LACOSAMIDE
     Indication: Tonic clonic movements
     Route: 042
     Dates: start: 20241201, end: 20241201
  7. VIMPAT [Interacting]
     Active Substance: LACOSAMIDE
     Indication: Tonic clonic movements
     Route: 042
     Dates: start: 20241210, end: 20241210
  8. KEPPRA [Concomitant]
     Active Substance: LEVETIRACETAM
     Indication: Tonic clonic movements
     Dosage: SOLUTION FOR DILUTION FOR INFUSION
     Route: 042
     Dates: start: 20241130, end: 20241130
  9. KEPPRA [Concomitant]
     Active Substance: LEVETIRACETAM
     Indication: Tonic clonic movements
     Dosage: SOLUTION FOR DILUTION FOR INFUSION
     Route: 042
     Dates: start: 20241202, end: 20241202
  10. KEPPRA [Concomitant]
     Active Substance: LEVETIRACETAM
     Indication: Tonic clonic movements
     Dosage: SOLUTION FOR DILUTION FOR INFUSION
     Route: 042
     Dates: start: 20241203, end: 20241215
  11. KEPPRA [Concomitant]
     Active Substance: LEVETIRACETAM
     Indication: Tonic clonic movements
     Dosage: SOLUTION FOR DILUTION FOR INFUSION
     Route: 042
     Dates: start: 20241201, end: 20241201
  12. KEPPRA [Concomitant]
     Active Substance: LEVETIRACETAM
     Indication: Tonic clonic movements
     Dosage: SOLUTION FOR DILUTION FOR INFUSION
     Route: 042
     Dates: start: 20241216, end: 20241218
  13. PERINDOPRIL ERBUMINE [Concomitant]
     Active Substance: PERINDOPRIL ERBUMINE
     Indication: Hypertension
     Route: 048
     Dates: start: 20241207, end: 20241210
  14. PERINDOPRIL ERBUMINE [Concomitant]
     Active Substance: PERINDOPRIL ERBUMINE
     Indication: Hypertension
     Route: 048
     Dates: start: 2024, end: 20241203
  15. LOVENOX [Concomitant]
     Active Substance: ENOXAPARIN SODIUM
     Indication: Thrombosis prophylaxis
     Dosage: ANTI-XA/0.4 ML,
     Route: 058
     Dates: start: 20241128, end: 20241210
  16. ACETAMINOPHEN [Concomitant]
     Active Substance: ACETAMINOPHEN
     Indication: Pain
     Route: 042
     Dates: start: 20241127
  17. VALPROATE SODIUM [Concomitant]
     Active Substance: VALPROATE SODIUM
     Indication: Tonic clonic movements
     Dosage: 400 MG/4 ML, INJECTABLE PREPARATION FOR IV ROUTE.
     Route: 042
     Dates: start: 20241203, end: 20241218
  18. KARDEGIC [Concomitant]
     Active Substance: ASPIRIN DL-LYSINE
     Indication: Thrombosis prophylaxis
     Dosage: POWDER FOR ORAL SOLUTION IN SACHET-DOSE
     Route: 048
     Dates: start: 20241207
  19. KARDEGIC [Concomitant]
     Active Substance: ASPIRIN DL-LYSINE
     Indication: Thrombosis prophylaxis
     Dosage: POWDER FOR ORAL SOLUTION IN SACHET-DOSE
     Route: 048
     Dates: start: 2024, end: 20241127
  20. NOVORAPID [Concomitant]
     Active Substance: INSULIN ASPART
     Indication: Type 2 diabetes mellitus
     Dosage: 100 U/ML, SOLUTION FOR INJECTION IN VIAL
     Route: 058
     Dates: start: 20241128, end: 20241218

REACTIONS (2)
  - Atrioventricular block complete [Recovered/Resolved]
  - Drug interaction [Recovered/Resolved]

NARRATIVE: CASE EVENT DATE: 20241201
